FAERS Safety Report 5239539-8 (Version None)
Quarter: 2007Q1

REPORT INFORMATION
  Report Type: 
  Country: None (occurrence: None)
  Receive Date: 20070216
  Receipt Date: 20070213
  Transmission Date: 20070707
  Serious: Yes (Life-Threatening, Hospitalization)
  Sender: FDA-Public Use
  Company Number: GB-SOLVAY-00307000437

PATIENT
  Age: 21436 Day
  Sex: Male
  Weight: 85.6 kg

DRUGS (14)
  1. ASPIRIN [Concomitant]
     Indication: CORONARY ARTERY DISEASE
     Dosage: DAILY DOSE:  UNKNOWN
     Route: 065
  2. TESTOSTERONE [Suspect]
     Indication: ANDROGEN DEFICIENCY
     Dosage: DAILY DOSE:  UNKNOWN
     Route: 062
     Dates: start: 20060102, end: 20061203
  3. TESTOGEL VS PLACEBO [Suspect]
     Indication: ANDROGEN DEFICIENCY
     Dosage: DAILY DOSE:  UNKNOWN
     Route: 062
     Dates: start: 20050705, end: 20060101
  4. DILTIAZEM HCL [Concomitant]
     Indication: CORONARY ARTERY DISEASE
     Dosage: DAILY DOSE:  UNKNOWN
     Route: 065
  5. LISINOPRIL [Concomitant]
     Indication: CORONARY ARTERY DISEASE
     Dosage: DAILY DOSE:  UNKNOWN
     Route: 065
  6. ATENOLOL [Concomitant]
     Indication: CORONARY ARTERY DISEASE
     Dosage: DAILY DOSE:  UNKNOWN
     Route: 065
  7. NITROLINGUAL [Concomitant]
     Indication: CORONARY ARTERY DISEASE
     Dosage: DAILY DOSE:  UNKNOWN
     Route: 065
  8. LANSOPRAZOLE [Concomitant]
     Indication: HIATUS HERNIA
     Dosage: DAILY DOSE:  UNKNOWN
     Route: 065
  9. ROSUVASTATIN [Concomitant]
     Indication: CORONARY ARTERY DISEASE
     Dosage: DAILY DOSE:  UNKNOWN
     Route: 065
     Dates: end: 20061204
  10. FRUSEMIDE [Concomitant]
     Indication: CARDIAC VALVE DISEASE
     Dosage: DAILY DOSE:  UNKNOWN
     Route: 065
  11. ISOSORBIDE MONONITRATE [Concomitant]
     Indication: CORONARY ARTERY DISEASE
     Dosage: DAILY DOSE:  UNKNOWN
     Route: 065
  12. PROCHLORPERAZINE [Concomitant]
     Indication: DIZZINESS
     Dosage: DAILY DOSE:  UNKNOWN
     Route: 065
  13. IBUPROFEN [Concomitant]
     Indication: ILL-DEFINED DISORDER
     Dosage: DAILY DOSE:  UNKNOWN
     Route: 065
     Dates: end: 20061204
  14. ACETAMINOPHEN W/ CODEINE [Concomitant]
     Indication: ILL-DEFINED DISORDER
     Dosage: DAILY DOSE:  UNKNOWN
     Route: 065

REACTIONS (1)
  - MYOCARDIAL INFARCTION [None]
